FAERS Safety Report 14190558 (Version 3)
Quarter: 2017Q4

REPORT INFORMATION
  Report Type: Spontaneous
  Country: US (occurrence: US)
  Receive Date: 20171115
  Receipt Date: 20171208
  Transmission Date: 20180321
  Serious: Yes (Other)
  Sender: FDA-Public Use
  Company Number: US-JNJFOC-20171110766

PATIENT
  Age: 32 Year
  Sex: Female
  Weight: 52.16 kg

DRUGS (3)
  1. NEUTROGENA OIL FREE ACNE WASH DAILY SCRUB WITH MICROCLEAR TECHNOLOGY [Suspect]
     Active Substance: SALICYLIC ACID
     Indication: ACNE
     Route: 061
     Dates: start: 20171014, end: 20171014
  2. NTG DEEP CLEAN INVIG FOAM SCRUB USA [Suspect]
     Active Substance: COSMETICS
     Indication: ACNE
     Route: 061
     Dates: start: 20171014, end: 20171014
  3. NEUTROGENA OIL FREE ACNE WASH [Suspect]
     Active Substance: SALICYLIC ACID
     Indication: ACNE
     Route: 061
     Dates: start: 20171014, end: 20171014

REACTIONS (5)
  - Product lot number issue [Unknown]
  - Burns third degree [Recovering/Resolving]
  - Application site acne [Recovering/Resolving]
  - Application site pain [Recovering/Resolving]
  - Product expiration date issue [Unknown]

NARRATIVE: CASE EVENT DATE: 20171015
